FAERS Safety Report 18367411 (Version 4)
Quarter: 2021Q4

REPORT INFORMATION
  Report Type: Spontaneous
  Country: US (occurrence: US)
  Receive Date: 20201009
  Receipt Date: 20211028
  Transmission Date: 20220303
  Serious: Yes (Other)
  Sender: FDA-Public Use
  Company Number: US-JNJFOC-20201001161

PATIENT
  Age: 7 Decade
  Sex: Female

DRUGS (19)
  1. ELMIRON [Suspect]
     Active Substance: PENTOSAN POLYSULFATE SODIUM
     Indication: Cystitis interstitial
     Route: 048
     Dates: start: 2015
  2. ELMIRON [Suspect]
     Active Substance: PENTOSAN POLYSULFATE SODIUM
     Indication: Bladder pain
     Dosage: 2 IN AM AND 1 IN PM
     Route: 048
     Dates: start: 20150215, end: 20190409
  3. ELMIRON [Suspect]
     Active Substance: PENTOSAN POLYSULFATE SODIUM
     Indication: Pain
     Dosage: 2 IN AM AND 1 IN PM
     Route: 048
     Dates: start: 20150311, end: 201907
  4. ELMIRON [Suspect]
     Active Substance: PENTOSAN POLYSULFATE SODIUM
     Route: 048
     Dates: end: 20190628
  5. AMITRIPTYLINE [Concomitant]
     Active Substance: AMITRIPTYLINE
     Indication: Migraine
     Route: 065
     Dates: start: 1984
  6. MAXALT [Concomitant]
     Active Substance: RIZATRIPTAN BENZOATE
     Indication: Migraine
     Route: 065
     Dates: start: 2013
  7. SYNTHROID [Concomitant]
     Active Substance: LEVOTHYROXINE SODIUM
     Indication: Thyroid disorder
     Route: 065
     Dates: start: 2008
  8. GRALISE [Concomitant]
     Active Substance: GABAPENTIN
     Indication: Migraine
     Route: 065
     Dates: start: 2015
  9. ASACOL [Concomitant]
     Active Substance: MESALAMINE
     Indication: Colitis microscopic
     Route: 065
     Dates: start: 1988
  10. VESICARE [Concomitant]
     Active Substance: SOLIFENACIN SUCCINATE
     Indication: Cystitis interstitial
     Route: 065
     Dates: start: 2015
  11. ESCITALOPRAM [Concomitant]
     Active Substance: ESCITALOPRAM OXALATE
     Indication: Depression
     Route: 065
     Dates: start: 2014
  12. MELOXICAM [Concomitant]
     Active Substance: MELOXICAM
     Indication: Pain
     Route: 065
     Dates: start: 2016
  13. DIAZEPAM [Concomitant]
     Active Substance: DIAZEPAM
     Indication: Pain
     Route: 065
     Dates: start: 2015, end: 2020
  14. MONTELUKAST [Concomitant]
     Active Substance: MONTELUKAST SODIUM
     Indication: Asthma
     Route: 065
     Dates: start: 2017
  15. ALENDRONATE SODIUM [Concomitant]
     Active Substance: ALENDRONATE SODIUM
     Indication: Osteoporosis
     Route: 065
     Dates: start: 2018
  16. ALBUTEROL [Concomitant]
     Active Substance: ALBUTEROL
     Indication: Asthma
     Route: 065
     Dates: start: 2019
  17. DICLOFENAC [Concomitant]
     Active Substance: DICLOFENAC
     Indication: Pain
     Route: 065
     Dates: start: 2016
  18. HYDROCODONE [Concomitant]
     Active Substance: HYDROCODONE
     Indication: Pain
     Route: 065
     Dates: start: 2012
  19. PHENAZOPYRIDINE [Concomitant]
     Active Substance: PHENAZOPYRIDINE
     Indication: Bladder pain
     Route: 065
     Dates: start: 2014, end: 2020

REACTIONS (1)
  - Retinal degeneration [Not Recovered/Not Resolved]

NARRATIVE: CASE EVENT DATE: 20190101
